FAERS Safety Report 8092707-2 (Version None)
Quarter: 2012Q1

REPORT INFORMATION
  Report Type: 
  Country: None (occurrence: None)
  Receive Date: 20120128
  Receipt Date: 20110802
  Transmission Date: 20120608
  Serious: No
  Sender: FDA-Public Use
  Company Number: US-ABBOTT-11P-163-0844029-00

PATIENT
  Sex: Female
  Weight: 79.45 kg

DRUGS (5)
  1. TRAMADOL HCL [Concomitant]
     Indication: PAIN
  2. VICODIN [Concomitant]
     Indication: PAIN
  3. CYMBALTA [Concomitant]
     Indication: DEPRESSION
  4. HUMIRA [Suspect]
     Indication: CROHN'S DISEASE
     Dosage: 160 MG X 1 DOSE; LOADING DOSE
     Route: 058
     Dates: start: 20110730, end: 20110730
  5. LYRICA [Concomitant]
     Indication: FIBROMYALGIA

REACTIONS (4)
  - FATIGUE [None]
  - VISION BLURRED [None]
  - DIZZINESS [None]
  - HEADACHE [None]
